FAERS Safety Report 6440473-6 (Version None)
Quarter: 2009Q4

REPORT INFORMATION
  Report Type: 
  Country: None (occurrence: None)
  Receive Date: 20091113
  Receipt Date: 20091103
  Transmission Date: 20100525
  Serious: Yes (Other)
  Sender: FDA-Public Use
  Company Number: US-TYCO HEALTHCARE/MALLINCKRODT-T200902031

PATIENT
  Sex: Female
  Weight: 63.492 kg

DRUGS (1)
  1. OPTIMARK [Suspect]
     Indication: NUCLEAR MAGNETIC RESONANCE IMAGING BRAIN
     Dosage: 15 ML, SINGLE
     Route: 042
     Dates: start: 20091103, end: 20091103

REACTIONS (5)
  - ASTHMA [None]
  - DRUG PRESCRIBING ERROR [None]
  - HEADACHE [None]
  - NAUSEA [None]
  - PRURITUS [None]
